FAERS Safety Report 5231813-4 (Version None)
Quarter: 2007Q1

REPORT INFORMATION
  Report Type: 
  Country: None (occurrence: None)
  Receive Date: 20070206
  Receipt Date: 20070125
  Transmission Date: 20070707
  Serious: Yes (Hospitalization)
  Sender: FDA-Public Use
  Company Number: AU-PFIZER INC-2007008659

PATIENT
  Age: 52 Year
  Sex: Female

DRUGS (4)
  1. CELEBREX [Suspect]
     Dosage: DAILY DOSE:200MG
  2. MOBIC [Suspect]
  3. CIPRAMIL [Concomitant]
     Indication: DEPRESSION
  4. CRESTOR [Concomitant]
     Indication: BLOOD CHOLESTEROL

REACTIONS (1)
  - CARDIOVASCULAR DISORDER [None]
